FAERS Safety Report 20608336 (Version 1)
Quarter: 2022Q1

REPORT INFORMATION
  Report Type: Spontaneous
  Country: US (occurrence: None)
  Receive Date: 20220317
  Receipt Date: 20220317
  Transmission Date: 20220423
  Serious: Yes (Death)
  Sender: FDA-Public Use
  Company Number: None

PATIENT
  Sex: Female
  Weight: 73.03 kg

DRUGS (13)
  1. CAPECITABINE [Suspect]
     Active Substance: CAPECITABINE
     Indication: Cholangiocarcinoma
     Dosage: OTHER QUANTITY : 1500MG AND 1000MG;?OTHER FREQUENCY : 3T AM, 2T PM;?
     Route: 048
  2. ACETAMINOPHEN ORAL TABLET [Concomitant]
  3. ASPIRIN [Concomitant]
     Active Substance: ASPIRIN
  4. CASODEX [Concomitant]
     Active Substance: BICALUTAMIDE
  5. FERROUS SULFATE ORAL TABLET [Concomitant]
  6. LIPITOR [Concomitant]
     Active Substance: ATORVASTATIN CALCIUM
  7. MAGNESIUM HYDROXIDE [Concomitant]
     Active Substance: MAGNESIUM HYDROXIDE
  8. METOPROLOL TARTRATE [Concomitant]
     Active Substance: METOPROLOL TARTRATE
  9. ONDANSETRON [Concomitant]
     Active Substance: ONDANSETRON
  10. OXYBUTYNIN [Concomitant]
     Active Substance: OXYBUTYNIN
  11. PLAVIX [Concomitant]
     Active Substance: CLOPIDOGREL BISULFATE
  12. TRESIBA SUBCUTANEOUS [Concomitant]
  13. VITAMIN D [Concomitant]
     Active Substance: VITAMIN D NOS

REACTIONS (1)
  - Death [None]
